FAERS Safety Report 16551670 (Version 1)
Quarter: 2019Q3

REPORT INFORMATION
  Report Type: Spontaneous
  Country: US (occurrence: US)
  Receive Date: 20190710
  Receipt Date: 20190710
  Transmission Date: 20191004
  Serious: Yes (Other)
  Sender: FDA-Public Use
  Company Number: US-PFIZER INC-2019291613

PATIENT
  Age: 63 Year

DRUGS (1)
  1. LYRICA [Suspect]
     Active Substance: PREGABALIN
     Dosage: UNK, ONLY TAKING ONE AT NIGHT

REACTIONS (4)
  - Intentional product use issue [Unknown]
  - Hypersomnia [Unknown]
  - Cerebrovascular accident [Unknown]
  - Nerve injury [Unknown]
